FAERS Safety Report 9995537 (Version 1)
Quarter: 2014Q1

REPORT INFORMATION
  Report Type: Spontaneous
  Country: JP (occurrence: JP)
  Receive Date: 20140311
  Receipt Date: 20140311
  Transmission Date: 20141002
  Serious: Yes (Death, Hospitalization)
  Sender: FDA-Public Use
  Company Number: JP-SA-2014SA029543

PATIENT
  Age: 73 Year
  Sex: Male

DRUGS (12)
  1. BCG FOR IMMUNOTHERAPY [Suspect]
     Indication: BLADDER CANCER
     Route: 043
  2. BCG FOR IMMUNOTHERAPY [Suspect]
     Indication: URETERIC CANCER
     Route: 043
  3. BCG FOR IMMUNOTHERAPY [Suspect]
     Indication: BLADDER CANCER
     Route: 043
  4. BCG FOR IMMUNOTHERAPY [Suspect]
     Indication: URETERIC CANCER
     Route: 043
  5. BCG FOR IMMUNOTHERAPY [Suspect]
     Indication: BLADDER CANCER
     Route: 043
  6. BCG FOR IMMUNOTHERAPY [Suspect]
     Indication: URETERIC CANCER
     Route: 043
  7. BCG FOR IMMUNOTHERAPY [Suspect]
     Indication: BLADDER CANCER
     Route: 043
  8. BCG FOR IMMUNOTHERAPY [Suspect]
     Indication: URETERIC CANCER
     Route: 043
  9. BCG FOR IMMUNOTHERAPY [Suspect]
     Indication: BLADDER CANCER
     Route: 043
  10. BCG FOR IMMUNOTHERAPY [Suspect]
     Indication: URETERIC CANCER
     Route: 043
  11. BCG FOR IMMUNOTHERAPY [Suspect]
     Indication: BLADDER CANCER
     Route: 043
  12. BCG FOR IMMUNOTHERAPY [Suspect]
     Indication: URETERIC CANCER
     Route: 043

REACTIONS (6)
  - Renal tuberculosis [Fatal]
  - Granuloma [Fatal]
  - Urinary tract infection [Fatal]
  - Pyrexia [Fatal]
  - Interstitial lung disease [Fatal]
  - Transitional cell carcinoma [Unknown]
